FAERS Safety Report 6366985-1 (Version None)
Quarter: 2009Q3

REPORT INFORMATION
  Report Type: 
  Country: None (occurrence: None)
  Receive Date: 20090915
  Receipt Date: 20090904
  Transmission Date: 20100115
  Serious: Yes (Death, Congenital Anomaly)
  Sender: FDA-Public Use
  Company Number: GXKR2009NL10050

PATIENT
  Sex: Female

DRUGS (1)
  1. PAROXETINE SANDOZ (NGX)(PAROXETINE) FILM-COATED TABLET, 20MG [Suspect]
     Dosage: MATERNAL DOSE: 60 MG/DAY, TRANSPLACENTAL
     Route: 064

REACTIONS (5)
  - HYPOPLASTIC LEFT HEART SYNDROME [None]
  - MATERNAL DRUGS AFFECTING FOETUS [None]
  - NEONATAL RESPIRATORY DISTRESS SYNDROME [None]
  - PULMONARY HYPERTENSION [None]
  - TREATMENT FAILURE [None]
